FAERS Safety Report 4320585-3 (Version None)
Quarter: 2004Q1

REPORT INFORMATION
  Report Type: 
  Country: None (occurrence: None)
  Receive Date: 20040319
  Receipt Date: 20040319
  Transmission Date: 20041129
  Serious: Yes (Other)
  Sender: FDA-Public Use
  Company Number: None

PATIENT
  Age: 22 Year
  Sex: Female
  Weight: 65.318 kg

DRUGS (1)
  1. MIRENA [Suspect]
     Dosage: IMPLANTED
     Route: 015
     Dates: start: 20020516

REACTIONS (8)
  - INTRA-UTERINE CONTRACEPTIVE DEVICE EXPELLED [None]
  - IUCD COMPLICATION [None]
  - MUSCLE CRAMP [None]
  - PAIN [None]
  - POST COITAL BLEEDING [None]
  - VAGINAL DISCHARGE [None]
  - VAGINAL HAEMORRHAGE [None]
  - VAGINAL ODOUR [None]
